FAERS Safety Report 5949723-3 (Version None)
Quarter: 2008Q4

REPORT INFORMATION
  Report Type: 
  Country: None (occurrence: None)
  Receive Date: 20081112
  Receipt Date: 20081003
  Transmission Date: 20090506
  Serious: No
  Sender: FDA-Public Use
  Company Number: US-BAYER-200834947NA

PATIENT
  Age: 42 Year
  Sex: Female
  Weight: 82 kg

DRUGS (2)
  1. MAGNEVIST [Suspect]
     Indication: NUCLEAR MAGNETIC RESONANCE IMAGING ABDOMINAL
     Dosage: TOTAL DAILY DOSE: 20 ML  UNIT DOSE: 100 ML
     Route: 042
     Dates: start: 20081003, end: 20081003
  2. XANAX [Concomitant]
     Indication: ANXIETY
     Dates: start: 20081003

REACTIONS (3)
  - OEDEMA MOUTH [None]
  - PRURITUS [None]
  - URTICARIA [None]
